FAERS Safety Report 24046897 (Version 1)
Quarter: 2024Q3

REPORT INFORMATION
  Report Type: Spontaneous
  Country: US (occurrence: None)
  Receive Date: 20240701
  Receipt Date: 20240701
  Transmission Date: 20241017
  Serious: Yes (Other)
  Sender: Public
  Company Number: None

PATIENT
  Age: 21 Year
  Sex: Female
  Weight: 54 kg

DRUGS (2)
  1. HERBALS\MITRAGYNINE [Suspect]
     Active Substance: HERBALS\MITRAGYNINE
     Indication: Pain
     Route: 048
     Dates: start: 20240620, end: 20240621
  2. HYDROXIE KRATOM [Concomitant]

REACTIONS (1)
  - Malaise [None]

NARRATIVE: CASE EVENT DATE: 20240620
